FAERS Safety Report 6997393-8 (Version None)
Quarter: 2010Q3

REPORT INFORMATION
  Report Type: 
  Country: None (occurrence: None)
  Receive Date: 20100918
  Receipt Date: 20091012
  Transmission Date: 20110219
  Serious: Yes (Other)
  Sender: FDA-Public Use
  Company Number: US-WYE-H11564509

PATIENT
  Sex: Female

DRUGS (3)
  1. PRISTIQ [Suspect]
     Route: 048
     Dates: start: 20090901, end: 20090901
  2. TIZANIDINE HCL [Concomitant]
     Dosage: UNKNOWN
  3. KLONOPIN [Suspect]
     Dosage: UNKNOWN
     Dates: end: 20090101

REACTIONS (3)
  - CONTUSION [None]
  - HAEMATOMA [None]
  - HEPATIC ENZYME INCREASED [None]
